FAERS Safety Report 17756930 (Version 1)
Quarter: 2020Q2

REPORT INFORMATION
  Report Type: Spontaneous
  Country: PT (occurrence: PT)
  Receive Date: 20200507
  Receipt Date: 20200507
  Transmission Date: 20200714
  Serious: Yes (Hospitalization, Other)
  Sender: FDA-Public Use
  Company Number: PT-ACCORD-180841

PATIENT
  Age: 58 Year
  Sex: Male

DRUGS (7)
  1. MYCOPHENOLATE MOFETIL/MYCOPHENOLATE SODIUM/MYCOPHENOLIC ACID [Suspect]
     Active Substance: MYCOPHENOLIC ACID
     Indication: IMMUNOSUPPRESSANT DRUG THERAPY
  2. ANTITHYMOCYTE IMMUNOGLOBULIN [Suspect]
     Active Substance: THYMOCYTE IMMUNE GLOBULIN NOS
     Indication: IMMUNOSUPPRESSANT DRUG THERAPY
  3. TACROLIMUS. [Suspect]
     Active Substance: TACROLIMUS
     Indication: IMMUNOSUPPRESSANT DRUG THERAPY
  4. MYCOPHENOLIC ACID. [Suspect]
     Active Substance: MYCOPHENOLIC ACID
     Indication: IMMUNOSUPPRESSANT DRUG THERAPY
  5. EVEROLIMUS. [Suspect]
     Active Substance: EVEROLIMUS
     Indication: IMMUNOSUPPRESSANT DRUG THERAPY
  6. PREDNISOLONE. [Suspect]
     Active Substance: PREDNISOLONE
     Indication: IMMUNOSUPPRESSANT DRUG THERAPY
  7. RITUXIMAB. [Suspect]
     Active Substance: RITUXIMAB
     Indication: IMMUNOSUPPRESSANT DRUG THERAPY
     Dosage: 500 MG

REACTIONS (15)
  - Eosinophilia [Recovered/Resolved]
  - Large intestine polyp [Recovered/Resolved]
  - Helicobacter infection [Recovered/Resolved]
  - Large intestinal ulcer [Recovering/Resolving]
  - Fatigue [Recovering/Resolving]
  - Strongyloidiasis [Recovered/Resolved]
  - Kidney fibrosis [Recovering/Resolving]
  - Large intestine infection [Recovering/Resolving]
  - Metabolic acidosis [Recovering/Resolving]
  - Renal tubular atrophy [Recovering/Resolving]
  - Dehydration [Recovering/Resolving]
  - Anorectal varices [Recovered/Resolved]
  - Diverticulum [Recovered/Resolved]
  - Renal impairment [Recovering/Resolving]
  - Isosporiasis [Recovering/Resolving]
